FAERS Safety Report 22092397 (Version 1)
Quarter: 2023Q1

REPORT INFORMATION
  Report Type: Report from Study
  Country: US (occurrence: US)
  Receive Date: 20230314
  Receipt Date: 20230314
  Transmission Date: 20230417
  Serious: Yes (Hospitalization, Other)
  Sender: FDA-Public Use
  Company Number: US-ABBVIE-4321431

PATIENT
  Sex: Female

DRUGS (1)
  1. RINVOQ [Suspect]
     Active Substance: UPADACITINIB
     Indication: Colitis ulcerative
     Dosage: DRUG START DATE: 23 JAN 2023
     Route: 048

REACTIONS (6)
  - Cardiac disorder [Not Recovered/Not Resolved]
  - Gastrointestinal disorder [Unknown]
  - Influenza [Recovering/Resolving]
  - Anxiety [Not Recovered/Not Resolved]
  - Haematochezia [Recovered/Resolved]
  - Enterocolitis haemorrhagic [Recovered/Resolved]

NARRATIVE: CASE EVENT DATE: 20230101
